FAERS Safety Report 20976742 (Version 1)
Quarter: 2022Q2

REPORT INFORMATION
  Report Type: Spontaneous
  Country: SA (occurrence: SA)
  Receive Date: 20220617
  Receipt Date: 20220617
  Transmission Date: 20220720
  Serious: Yes (Life-Threatening, Other)
  Sender: FDA-Public Use
  Company Number: SA-MLMSERVICE-20220602-3590295-1

PATIENT
  Age: 48 Year
  Sex: Female

DRUGS (3)
  1. CYCLOPHOSPHAMIDE [Suspect]
     Active Substance: CYCLOPHOSPHAMIDE
     Indication: Breast cancer
     Dosage: 600 MG/M2, 4 CYCLICAL, EVERY 14 DAYS, ADJUVANT CHEMOTHERAPY
     Route: 042
  2. DOXORUBICIN [Suspect]
     Active Substance: DOXORUBICIN
     Indication: Breast cancer
     Dosage: 60 MG/M2, 4 CYCLICAL, EVERY 14 DAYS, ADJUVANT CHEMOTHERAPY
     Route: 042
  3. ENTECAVIR [Concomitant]
     Active Substance: ENTECAVIR
     Indication: Antiviral prophylaxis
     Dosage: 0.5 MG, QD
     Route: 048

REACTIONS (8)
  - Acute hepatic failure [Unknown]
  - Jaundice [Unknown]
  - Coagulopathy [Unknown]
  - Hepatitis B reactivation [Unknown]
  - Jaundice [Unknown]
  - Brain oedema [Unknown]
  - Encephalopathy [Unknown]
  - Metabolic acidosis [Unknown]
